FAERS Safety Report 4733392-4 (Version None)
Quarter: 2005Q3

REPORT INFORMATION
  Report Type: 
  Country: None (occurrence: None)
  Receive Date: 20050729
  Receipt Date: 20050615
  Transmission Date: 20060218
  Serious: No
  Sender: FDA-Public Use
  Company Number: 11861

PATIENT
  Age: 71 Year
  Sex: Male

DRUGS (18)
  1. FLUOROURACIL [Suspect]
     Indication: COLORECTAL CANCER METASTATIC
     Dosage: 750 MG WEEKLY, IV
     Route: 042
     Dates: start: 20040721
  2. LEUCOVORIN [Suspect]
     Indication: COLORECTAL CANCER METASTATIC
     Dosage: 350 MG WEEKLY, IV
     Route: 042
     Dates: start: 20040721
  3. OXALIPLATIN [Suspect]
     Indication: COLORECTAL CANCER METASTATIC
     Dosage: 160 MG WEEKLY, IV
     Route: 042
     Dates: start: 20040721
  4. BEVACIZUMAB [Suspect]
     Indication: COLORECTAL CANCER METASTATIC
     Dosage: IV
     Route: 042
     Dates: start: 20040721
  5. GABAPENTIN [Concomitant]
  6. HALOPERIDOL [Concomitant]
  7. OXYCODONE [Concomitant]
  8. FENTANYL [Concomitant]
  9. ALBUTEROL SULFATE HFA [Concomitant]
  10. BECLOMETHASONE DIPROPIONATE [Concomitant]
  11. DEXAMETHASONE [Concomitant]
  12. CEFUROXIME [Concomitant]
  13. METRONIDAZOLE [Concomitant]
  14. ENOXAPARIN SODIUM [Concomitant]
  15. DOMPERIDONE [Concomitant]
  16. OXYCODONE [Concomitant]
  17. MEGESTROL [Concomitant]
  18. ERYTHROMYCIN [Concomitant]

REACTIONS (1)
  - VOMITING [None]
